FAERS Safety Report 5990160-3 (Version None)
Quarter: 2008Q4

REPORT INFORMATION
  Report Type: 
  Country: None (occurrence: None)
  Receive Date: 20081211
  Receipt Date: 20081203
  Transmission Date: 20090506
  Serious: Yes (Hospitalization, Other)
  Sender: FDA-Public Use
  Company Number: GB-NOVOPROD-270286

PATIENT
  Sex: Female
  Weight: 65 kg

DRUGS (12)
  1. INSULIN DETEMIR FLEXPEN [Suspect]
     Indication: INSULIN-REQUIRING TYPE 2 DIABETES MELLITUS
     Dosage: 16 IU, QD
     Route: 058
     Dates: start: 20050721, end: 20071203
  2. INSULIN DETEMIR FLEXPEN [Suspect]
     Dosage: 20 IU, QD
     Route: 058
     Dates: start: 20071204, end: 20071209
  3. INSULIN DETEMIR FLEXPEN [Suspect]
     Dosage: 16 IU, QD
     Route: 058
     Dates: start: 20071210
  4. NOVORAPID FLEXPEN [Suspect]
     Indication: INSULIN-REQUIRING TYPE 2 DIABETES MELLITUS
     Dosage: 30 IU, QD
     Route: 058
     Dates: start: 20070109, end: 20071129
  5. NOVORAPID FLEXPEN [Suspect]
     Dosage: 26 IU, QD
     Route: 058
     Dates: start: 20071130
  6. NOVORAPID FLEXPEN [Suspect]
     Dosage: 24 IU, QD
     Route: 058
  7. METFORMIN [Concomitant]
     Dosage: 3 G, QD
     Route: 048
     Dates: start: 19941201
  8. ATORVASTATIN [Concomitant]
     Dosage: 40 MG, QD
     Route: 048
     Dates: start: 19991101
  9. ASPIRIN [Concomitant]
     Dosage: 75 MG, QD
     Route: 048
     Dates: start: 19940101
  10. LAMOTRIGINE [Concomitant]
     Dosage: 200 MG, QD
     Route: 048
     Dates: start: 19991101
  11. LISINOPRIL [Concomitant]
     Dosage: 5 MG, QD
     Route: 048
     Dates: start: 19940101
  12. CO DYDRAMOL [Concomitant]
     Dosage: UNK, UNK
     Route: 048
     Dates: start: 20050201

REACTIONS (2)
  - HYPOGLYCAEMIA [None]
  - PANCREATIC CARCINOMA [None]
